FAERS Safety Report 4938637-3 (Version None)
Quarter: 2006Q1

REPORT INFORMATION
  Report Type: 
  Country: None (occurrence: None)
  Receive Date: 20060127
  Receipt Date: 20051110
  Transmission Date: 20060701
  Serious: Yes (Other)
  Sender: FDA-Public Use
  Company Number: 2005155707

PATIENT
  Age: 65 Year
  Sex: Female

DRUGS (2)
  1. LYRICA [Suspect]
     Indication: BACK PAIN
     Dosage: 75 MG (25 MG,3 IN 1 D)
     Dates: start: 20050101
  2. LYRICA [Suspect]
     Indication: NEUROPATHY
     Dosage: 75 MG (25 MG,3 IN 1 D)
     Dates: start: 20050101

REACTIONS (1)
  - CONTUSION [None]
